FAERS Safety Report 13045872 (Version 2)
Quarter: 2016Q4

REPORT INFORMATION
  Report Type: Spontaneous
  Country: FR (occurrence: FR)
  Receive Date: 20161220
  Receipt Date: 20161220
  Transmission Date: 20170207
  Serious: Yes (Life-Threatening)
  Sender: FDA-Public Use
  Company Number: FR-SA-2016SA230462

PATIENT
  Age: 83 Year
  Sex: Female

DRUGS (3)
  1. TOMUDEX [Concomitant]
     Active Substance: RALTITREXED
     Indication: NEOPLASM MALIGNANT
     Dosage: DOSE: 65% OF DOSE
     Route: 065
     Dates: start: 201612, end: 201612
  2. ELOXATIN [Suspect]
     Active Substance: OXALIPLATIN
     Indication: NEOPLASM MALIGNANT
     Dosage: STOP DATE: DEC2016
     Route: 042
     Dates: start: 201612, end: 201612
  3. ELOXATIN [Suspect]
     Active Substance: OXALIPLATIN
     Indication: NEOPLASM MALIGNANT
     Dosage: STOP DATE: DEC2016
     Route: 042
     Dates: start: 20161209, end: 20161209

REACTIONS (3)
  - Platelet count decreased [Not Recovered/Not Resolved]
  - Renal tubular necrosis [Not Recovered/Not Resolved]
  - Thrombocytopenic purpura [Not Recovered/Not Resolved]

NARRATIVE: CASE EVENT DATE: 201612
